FAERS Safety Report 23362119 (Version 2)
Quarter: 2024Q2

REPORT INFORMATION
  Report Type: Spontaneous
  Country: US (occurrence: None)
  Receive Date: 20240103
  Receipt Date: 20240607
  Transmission Date: 20240716
  Serious: Yes (Other)
  Sender: FDA-Public Use
  Company Number: 2023A295463

PATIENT
  Age: 35 Year
  Sex: Female

DRUGS (9)
  1. ANIFROLUMAB [Suspect]
     Active Substance: ANIFROLUMAB
     Indication: Chronic cutaneous lupus erythematosus
     Dates: start: 202210, end: 202301
  2. ANIFROLUMAB [Suspect]
     Active Substance: ANIFROLUMAB
     Indication: Chronic cutaneous lupus erythematosus
     Dates: start: 202210, end: 202301
  3. ANIFROLUMAB [Suspect]
     Active Substance: ANIFROLUMAB
     Indication: Chronic cutaneous lupus erythematosus
  4. ANIFROLUMAB [Suspect]
     Active Substance: ANIFROLUMAB
     Indication: Chronic cutaneous lupus erythematosus
  5. HYDROXYCHLOROQUINE [Concomitant]
     Active Substance: HYDROXYCHLOROQUINE
  6. QUINACRINE [Concomitant]
     Active Substance: QUINACRINE
     Indication: Chronic cutaneous lupus erythematosus
  7. QUINACRINE [Concomitant]
     Active Substance: QUINACRINE
     Indication: Cutaneous calcification
  8. MYCOPHENOLATE MOFETIL [Concomitant]
     Active Substance: MYCOPHENOLATE MOFETIL
  9. PREDNISONE [Concomitant]
     Active Substance: PREDNISONE

REACTIONS (1)
  - Chronic cutaneous lupus erythematosus [Recovering/Resolving]
